FAERS Safety Report 12854852 (Version 1)
Quarter: 2016Q4

REPORT INFORMATION
  Report Type: Other
  Country: US (occurrence: FR)
  Receive Date: 20161017
  Receipt Date: 20161017
  Transmission Date: 20170207
  Serious: Yes (Hospitalization)
  Sender: FDA-Public Use
  Company Number: FR-BRECKENRIDGE PHARMACEUTICAL, INC.-1058436

PATIENT
  Age: 82 Year
  Sex: Female

DRUGS (6)
  1. ATORVASTATIN CALCIUM. [Concomitant]
     Active Substance: ATORVASTATIN CALCIUM
  2. PREGABALIN. [Concomitant]
     Active Substance: PREGABALIN
  3. DULOXETHINE [Suspect]
     Active Substance: DULOXETINE
     Indication: DEPRESSION
  4. TRAMADOL. [Concomitant]
     Active Substance: TRAMADOL
  5. CELIPROLOL [Concomitant]
     Active Substance: CELIPROLOL
  6. CLORAZEPATE DIPOTASSIUM. [Concomitant]
     Active Substance: CLORAZEPATE DIPOTASSIUM

REACTIONS (1)
  - Toxic encephalopathy [Recovered/Resolved]
